FAERS Safety Report 22155799 (Version 1)
Quarter: 2023Q1

REPORT INFORMATION
  Report Type: Report from Study
  Country: BR (occurrence: BR)
  Receive Date: 20230330
  Receipt Date: 20230330
  Transmission Date: 20230417
  Serious: Yes (Hospitalization, Other)
  Sender: FDA-Public Use
  Company Number: BR-002147023-NVSC2023BR070139

PATIENT
  Sex: Female

DRUGS (1)
  1. KISQALI [Suspect]
     Active Substance: RIBOCICLIB
     Indication: Product used for unknown indication
     Dosage: UNK
     Route: 065

REACTIONS (9)
  - Nausea [Recovering/Resolving]
  - Retching [Recovering/Resolving]
  - Anxiety [Unknown]
  - Constipation [Recovering/Resolving]
  - Back pain [Recovering/Resolving]
  - Pleural effusion [Recovering/Resolving]
  - Metastases to spine [Recovering/Resolving]
  - Metastases to lung [Recovering/Resolving]
  - Pain [Recovering/Resolving]
